FAERS Safety Report 5467562-7 (Version None)
Quarter: 2007Q3

REPORT INFORMATION
  Report Type: 
  Country: None (occurrence: None)
  Receive Date: 20070921
  Receipt Date: 20070907
  Transmission Date: 20080115
  Serious: Yes (Other)
  Sender: FDA-Public Use
  Company Number: CLOF-10636

PATIENT
  Age: 1 Year
  Sex: Male
  Weight: 10 kg

DRUGS (7)
  1. CLOFARABINE. MFR: GENZYME [Suspect]
     Indication: ACUTE LYMPHOCYTIC LEUKAEMIA
     Dosage: 40 MG/M2 QD X 5 IV
     Route: 042
     Dates: start: 20070612, end: 20070616
  2. CYTARABINE [Suspect]
     Indication: ACUTE LYMPHOCYTIC LEUKAEMIA
     Dosage: 000 MG/M2 QD X 5 IV
     Route: 042
     Dates: start: 20070612, end: 20070616
  3. LACTOBACILLUS [Concomitant]
  4. VORICONAZOLE [Concomitant]
  5. BACTRIM [Concomitant]
  6. ZANTAC [Concomitant]
  7. QUESTRAN [Concomitant]

REACTIONS (2)
  - CAECITIS [None]
  - PNEUMATOSIS INTESTINALIS [None]
